FAERS Safety Report 7508042-4 (Version None)
Quarter: 2011Q2

REPORT INFORMATION
  Report Type: 
  Country: None (occurrence: None)
  Receive Date: 20110527
  Receipt Date: 20110520
  Transmission Date: 20111010
  Serious: Yes (Hospitalization, Other)
  Sender: FDA-Public Use
  Company Number: US-JNJFOC-20101200625

PATIENT
  Sex: Female

DRUGS (2)
  1. LEVAQUIN [Suspect]
     Indication: URINARY TRACT INFECTION
     Route: 048
     Dates: start: 20060320, end: 20070721
  2. LEVAQUIN [Suspect]
     Indication: CYSTITIS NONINFECTIVE
     Route: 048

REACTIONS (3)
  - INCORRECT DOSE ADMINISTERED [None]
  - ROTATOR CUFF SYNDROME [None]
  - MENISCUS LESION [None]
